FAERS Safety Report 5659562-9 (Version None)
Quarter: 2008Q1

REPORT INFORMATION
  Report Type: 
  Country: None (occurrence: None)
  Receive Date: 20080311
  Receipt Date: 20080228
  Transmission Date: 20080703
  Serious: Yes (Hospitalization, Other)
  Sender: FDA-Public Use
  Company Number: HQWYE331010NOV04

PATIENT
  Sex: Female

DRUGS (4)
  1. CYCRIN [Suspect]
  2. CLIMARA [Suspect]
  3. ESTRADERM [Suspect]
  4. PREMARIN [Suspect]

REACTIONS (1)
  - GALLBLADDER CANCER METASTATIC [None]
